FAERS Safety Report 8933027 (Version 1)
Quarter: 2012Q4

REPORT INFORMATION
  Report Type: 
  Country: FR (occurrence: FR)
  Receive Date: 20121128
  Receipt Date: 20121128
  Transmission Date: 20130627
  Serious: Yes (Life-Threatening, Hospitalization)
  Sender: FDA-Public Use
  Company Number: FR-VERTEX PHARMACEUTICAL INC.-000000000000000761

PATIENT
  Age: 37 Year
  Sex: Male
  Weight: 140 kg

DRUGS (15)
  1. INCIVO [Suspect]
     Indication: HEPATITIS C
     Dosage: 750 mg, tid
     Route: 048
     Dates: start: 20120112, end: 20120405
  2. INCIVO [Suspect]
     Dosage: Dosage Form: Tablet
     Route: 048
     Dates: start: 20120112, end: 20120405
  3. PEGASYS [Suspect]
     Indication: HEPATITIS C
     Dosage: UNK
     Route: 058
     Dates: start: 20120112
  4. PEGASYS [Suspect]
     Dosage: 180 ?g, qw
     Route: 058
  5. COPEGUS [Suspect]
     Indication: HEPATITIS C
     Dosage: 2.4 g, qd
     Route: 065
     Dates: start: 20120112, end: 20120223
  6. COPEGUS [Suspect]
     Dosage: 2 g, UNK
     Route: 065
     Dates: start: 20120223
  7. PRAZOSIN HYDROCHLORIDE [Suspect]
     Indication: HYPERTENSION
     Dosage: 10 mg, qd
     Route: 065
     Dates: start: 20110101
  8. ATARAX [Suspect]
     Indication: DEPRESSION
     Dosage: 100 mg, qd
     Route: 065
     Dates: start: 20110101
  9. NEORECORMON [Suspect]
     Indication: ANAEMIA
     Dosage: 30000 IU, qw
     Route: 065
     Dates: start: 20120202
  10. IMOVANE [Suspect]
     Indication: INSOMNIA
     Dosage: 7.5 mg, qd
     Route: 065
     Dates: start: 20110601
  11. STILNOX [Concomitant]
     Indication: DEPRESSION
     Dates: start: 2011
  12. CYMBALTA [Concomitant]
     Indication: DEPRESSION
     Dosage: 120 mg, qd
     Dates: start: 2011
  13. ABILIFY [Concomitant]
     Indication: DEPRESSION
     Dosage: 5 mg, qd
  14. PARACETAMOL [Concomitant]
     Indication: PROPHYLAXIS
     Dates: start: 20120112
  15. SEROQUEL [Concomitant]
     Indication: BIPOLAR DISORDER
     Dates: start: 20120402

REACTIONS (5)
  - Confusional state [Recovered/Resolved]
  - Sepsis [Recovered/Resolved]
  - Erysipelas [Recovered/Resolved]
  - Septic shock [Recovered/Resolved]
  - Streptococcal sepsis [Recovered/Resolved]
